FAERS Safety Report 19516351 (Version 1)
Quarter: 2021Q3

REPORT INFORMATION
  Report Type: Spontaneous
  Country: US (occurrence: US)
  Receive Date: 20210709
  Receipt Date: 20210709
  Transmission Date: 20211014
  Serious: No
  Sender: FDA-Public Use
  Company Number: US-ASTELLAS-2021US000139

PATIENT
  Sex: Female

DRUGS (2)
  1. MYRBETRIQ [Suspect]
     Active Substance: MIRABEGRON
     Dosage: 50 MG, ONCE DAILY [TWO TABLETS DAILY AT SAME TIME]
     Route: 048
     Dates: start: 20210105
  2. MYRBETRIQ [Suspect]
     Active Substance: MIRABEGRON
     Indication: HYPERTONIC BLADDER
     Route: 048
     Dates: start: 20200815, end: 20210104

REACTIONS (1)
  - Therapeutic product effect incomplete [Unknown]
